FAERS Safety Report 25593829 (Version 2)
Quarter: 2025Q3

REPORT INFORMATION
  Report Type: Spontaneous
  Country: EU (occurrence: EU)
  Receive Date: 20250723
  Receipt Date: 20250910
  Transmission Date: 20251021
  Serious: Yes (Death)
  Sender: ALEXION PHARMACEUTICALS
  Company Number: EU-AstraZeneca-CH-00914541AM

PATIENT
  Sex: Male

DRUGS (1)
  1. TICAGRELOR [Suspect]
     Active Substance: TICAGRELOR

REACTIONS (1)
  - Death [Fatal]
